FAERS Safety Report 9166491 (Version 1)
Quarter: 2013Q1

REPORT INFORMATION
  Report Type: Spontaneous
  Country: US (occurrence: US)
  Receive Date: 20130315
  Receipt Date: 20130315
  Transmission Date: 20140127
  Serious: Yes (Other)
  Sender: FDA-Public Use
  Company Number: CHPA2013US004521

PATIENT
  Age: 62 Year
  Sex: Female

DRUGS (2)
  1. PREVACID 24HR 15MG [Suspect]
     Indication: GASTROOESOPHAGEAL REFLUX DISEASE
     Dosage: 30 MG, QD
     Route: 048
  2. PREVACID 24HR 15MG [Suspect]
     Dosage: 15 MG, 2-3 TIMES WEEKLY
     Dates: start: 201301

REACTIONS (9)
  - Drug dependence [Unknown]
  - Withdrawal syndrome [Recovering/Resolving]
  - Disease recurrence [Recovering/Resolving]
  - Condition aggravated [Recovering/Resolving]
  - Abdominal pain [Recovering/Resolving]
  - Flatulence [Recovering/Resolving]
  - Malaise [Recovering/Resolving]
  - Prescribed overdose [Unknown]
  - Inappropriate schedule of drug administration [Unknown]
